FAERS Safety Report 4862522-9 (Version None)
Quarter: 2005Q4

REPORT INFORMATION
  Report Type: 
  Country: None (occurrence: None)
  Receive Date: 20051221
  Receipt Date: 20040109
  Transmission Date: 20060501
  Serious: Yes (Death)
  Sender: FDA-Public Use
  Company Number: US-GLAXOSMITHKLINE-A0492738A

PATIENT
  Age: 17 Year
  Sex: Female
  Weight: 69.1 kg

DRUGS (6)
  1. ADVAIR DISKUS 250/50 [Suspect]
     Indication: ASTHMA
     Dosage: 1PUFF TWICE PER DAY
     Route: 055
     Dates: start: 20010330
  2. SINGULAIR [Concomitant]
     Dosage: 10MG PER DAY
  3. ALLEGRA [Concomitant]
     Dosage: 60MG TWICE PER DAY
  4. MAXAIR [Concomitant]
     Dosage: 2PUFF AS REQUIRED
     Route: 055
  5. ALBUTEROL [Concomitant]
  6. BIRTH CONTROL PILLS [Concomitant]
     Indication: MENORRHAGIA
     Route: 048
     Dates: start: 20010927

REACTIONS (17)
  - AMNESIA [None]
  - ARRHYTHMIA [None]
  - ASTHMA [None]
  - BRONCHIAL OBSTRUCTION [None]
  - CARDIAC FAILURE [None]
  - CARDIO-RESPIRATORY ARREST [None]
  - CHEST DISCOMFORT [None]
  - DEPRESSED LEVEL OF CONSCIOUSNESS [None]
  - DYSPNOEA [None]
  - HYPERHIDROSIS [None]
  - LOSS OF CONSCIOUSNESS [None]
  - LUNG INFILTRATION [None]
  - MULTIPLE ALLERGIES [None]
  - PULMONARY CONGESTION [None]
  - PULMONARY OEDEMA [None]
  - TOXICOLOGIC TEST ABNORMAL [None]
  - VENTRICULAR FIBRILLATION [None]
